FAERS Safety Report 19053399 (Version 3)
Quarter: 2021Q2

REPORT INFORMATION
  Report Type: Spontaneous
  Country: US (occurrence: US)
  Receive Date: 20210324
  Receipt Date: 20210405
  Transmission Date: 20210717
  Serious: Yes (Other)
  Sender: FDA-Public Use
  Company Number: US-PFIZER INC-2021303071

PATIENT
  Age: 51 Year
  Sex: Female

DRUGS (2)
  1. IBRANCE [Suspect]
     Active Substance: PALBOCICLIB
     Indication: RETROPERITONEAL CANCER
     Dosage: 125 MG
  2. IBRANCE [Suspect]
     Active Substance: PALBOCICLIB
     Dosage: 125 MG, CYCLIC [125 MG DAILY FOR 21 DAYS, THEN 7 DAYS OFF EACH CYCLE OF 28 DAYS]
     Dates: start: 20210315

REACTIONS (3)
  - Diarrhoea [Recovering/Resolving]
  - Neutropenia [Unknown]
  - Off label use [Unknown]
